FAERS Safety Report 14502848 (Version 1)
Quarter: 2018Q1

REPORT INFORMATION
  Report Type: Spontaneous
  Country: US (occurrence: US)
  Receive Date: 20180208
  Receipt Date: 20180208
  Transmission Date: 20180509
  Serious: No
  Sender: FDA-Public Use
  Company Number: US-BIOGEN-2018BI00518225

PATIENT
  Sex: Female

DRUGS (1)
  1. TYSABRI [Suspect]
     Active Substance: NATALIZUMAB
     Indication: MULTIPLE SCLEROSIS
     Dosage: INFUSED OVER 1 HOUR
     Route: 042
     Dates: start: 2015

REACTIONS (9)
  - Depression [Unknown]
  - Fatigue [Unknown]
  - Tremor [Unknown]
  - Fall [Recovered/Resolved]
  - Dyspnoea [Unknown]
  - Anxiety [Unknown]
  - Hemianaesthesia [Unknown]
  - Gait disturbance [Unknown]
  - Memory impairment [Unknown]
